FAERS Safety Report 9955799 (Version 2)
Quarter: 2014Q2

REPORT INFORMATION
  Report Type: Spontaneous
  Country: IT (occurrence: IT)
  Receive Date: 20140304
  Receipt Date: 20140407
  Transmission Date: 20141212
  Serious: Yes (Other)
  Sender: FDA-Public Use
  Company Number: IT-MYLANLABS-2014S1003908

PATIENT
  Age: 30 Year
  Sex: Female
  Weight: 68 kg

DRUGS (2)
  1. PACLITAXEL [Suspect]
     Indication: BREAST CANCER
     Dosage: 150 MG CYCLICAL
     Route: 042
     Dates: start: 20140203
  2. HERCEPTIN [Concomitant]
     Indication: PRODUCT USED FOR UNKNOWN INDICATION
     Dosage: 300 MG SOLUTION FOR INJECTION
     Route: 042
     Dates: start: 20140203, end: 20140203

REACTIONS (3)
  - Flushing [Recovered/Resolved]
  - Feeling hot [Recovered/Resolved]
  - Hot flush [Recovered/Resolved]
